FAERS Safety Report 9433771 (Version 1)
Quarter: 2013Q3

REPORT INFORMATION
  Report Type: Spontaneous
  Country: US (occurrence: US)
  Receive Date: 20130731
  Receipt Date: 20130731
  Transmission Date: 20140515
  Serious: Yes (Hospitalization, Other)
  Sender: FDA-Public Use
  Company Number: CHPA2012US012756

PATIENT
  Age: 72 Year
  Sex: Male

DRUGS (3)
  1. CONTROL STEP 1 21MG [Suspect]
     Indication: SMOKING CESSATION THERAPY
     Dosage: 1 DF, QD
     Route: 062
     Dates: start: 201203
  2. CONTROL STEP 1 21MG [Suspect]
     Dosage: 1-2 PATCHES; QD
     Route: 062
     Dates: start: 201306
  3. OXYGEN THERAPY [Concomitant]

REACTIONS (6)
  - Lung disorder [Unknown]
  - Treatment noncompliance [Unknown]
  - Incorrect drug administration duration [Unknown]
  - Overdose [Unknown]
  - Application site pruritus [Not Recovered/Not Resolved]
  - Nicotine dependence [Unknown]
